FAERS Safety Report 19587438 (Version 1)
Quarter: 2021Q3

REPORT INFORMATION
  Report Type: Spontaneous
  Country: US (occurrence: US)
  Receive Date: 20210720
  Receipt Date: 20210720
  Transmission Date: 20211014
  Serious: Yes (Other)
  Sender: FDA-Public Use
  Company Number: None

PATIENT
  Age: 28 Year
  Sex: Female
  Weight: 45.45 kg

DRUGS (1)
  1. METHAZOLAMIDE 50MG TABLET [Suspect]
     Active Substance: METHAZOLAMIDE
     Indication: GLAUCOMA
     Dosage: ?          QUANTITY:120 TABLET(S);?
     Route: 048
     Dates: start: 20200330, end: 20210701

REACTIONS (8)
  - Diarrhoea [None]
  - Depression [None]
  - Confusional state [None]
  - Asthenia [None]
  - Suicide attempt [None]
  - Fatigue [None]
  - Weight decreased [None]
  - Decreased appetite [None]

NARRATIVE: CASE EVENT DATE: 20210328
